FAERS Safety Report 5292482-0 (Version None)
Quarter: 2007Q2

REPORT INFORMATION
  Report Type: 
  Country: None (occurrence: None)
  Receive Date: 20070403
  Receipt Date: 20070320
  Transmission Date: 20071010
  Serious: Yes (Hospitalization)
  Sender: FDA-Public Use
  Company Number: PHBS2006DK09998

PATIENT
  Age: 72 Year
  Sex: Female

DRUGS (9)
  1. GLIVEC(IMATINIB) TABLET [Suspect]
     Indication: CHRONIC MYELOID LEUKAEMIA
     Dosage: 200 MG/DAY, ORAL, ORAL, ORAL
     Route: 048
     Dates: start: 20060522, end: 20060611
  2. GLIVEC(IMATINIB) TABLET [Suspect]
     Indication: CHRONIC MYELOID LEUKAEMIA
     Dosage: 200 MG/DAY, ORAL, ORAL, ORAL
     Route: 048
     Dates: start: 20060622, end: 20060630
  3. GLIVEC(IMATINIB) TABLET [Suspect]
     Indication: CHRONIC MYELOID LEUKAEMIA
     Dosage: 200 MG/DAY, ORAL, ORAL, ORAL
     Route: 048
     Dates: start: 20060918
  4. SIMVASTATIN [Suspect]
     Indication: HYPERCHOLESTEROLAEMIA
     Dosage: 40 MG/DAY, ORAL
     Route: 048
     Dates: end: 20060628
  5. NEXIUM [Concomitant]
  6. CENTYL (BENDROFLUMETHIAZIDE) TABLET, 5 MG [Concomitant]
  7. RAMIPRIL [Concomitant]
  8. HJERTEMAGNYL DAK (ACETYSALICYLIC ACID, MAGNESIUM OXIDE HEAVY) [Concomitant]
  9. ZOLPIDEM TARTRATE [Concomitant]

REACTIONS (7)
  - ALANINE AMINOTRANSFERASE INCREASED [None]
  - CARDIOTOXICITY [None]
  - CHRONIC MYELOID LEUKAEMIA [None]
  - DRUG INTERACTION [None]
  - GAIT DISTURBANCE [None]
  - HEPATIC ENZYME ABNORMAL [None]
  - RHABDOMYOLYSIS [None]
